FAERS Safety Report 12030018 (Version 1)
Quarter: 2016Q1

REPORT INFORMATION
  Report Type: Report from Study
  Country: US (occurrence: US)
  Receive Date: 20160207
  Receipt Date: 20160207
  Transmission Date: 20160526
  Serious: No
  Sender: FDA-Public Use
  Company Number: US-ABBVIE-15K-163-1501956-00

PATIENT
  Age: 29 Year
  Sex: Female
  Weight: 45.4 kg

DRUGS (7)
  1. NAPROSYN [Suspect]
     Active Substance: NAPROXEN
     Indication: FOOT FRACTURE
     Route: 048
     Dates: start: 20151007
  2. VITAMIN D [Concomitant]
     Active Substance: CHOLECALCIFEROL
     Indication: PRODUCT USED FOR UNKNOWN INDICATION
  3. NAPROSYN [Suspect]
     Active Substance: NAPROXEN
     Indication: PAIN IN EXTREMITY
  4. NAPROSYN [Suspect]
     Active Substance: NAPROXEN
     Indication: PERIPHERAL SWELLING
  5. IRON [Concomitant]
     Active Substance: IRON
     Indication: PRODUCT USED FOR UNKNOWN INDICATION
  6. VITAMIN B12 [Concomitant]
     Active Substance: CYANOCOBALAMIN
     Indication: PRODUCT USED FOR UNKNOWN INDICATION
  7. HUMIRA [Suspect]
     Active Substance: ADALIMUMAB
     Indication: CROHN^S DISEASE
     Route: 058

REACTIONS (2)
  - Crohn^s disease [Recovering/Resolving]
  - Foot fracture [Recovering/Resolving]

NARRATIVE: CASE EVENT DATE: 201510
